FAERS Safety Report 10547306 (Version 27)
Quarter: 2024Q3

REPORT INFORMATION
  Report Type: Report from Study
  Country: CA (occurrence: CA)
  Receive Date: 20141028
  Receipt Date: 20240812
  Transmission Date: 20241017
  Serious: Yes (Hospitalization, Other)
  Sender: ROCHE
  Company Number: CA-ROCHE-1479164

PATIENT
  Age: 66 Year
  Sex: Female
  Weight: 69.0 kg

DRUGS (17)
  1. XOLAIR [Suspect]
     Active Substance: OMALIZUMAB
     Indication: Asthma
     Dosage: 150 MG, EVERY 4 WEEKS
     Route: 058
  2. XOLAIR [Suspect]
     Active Substance: OMALIZUMAB
     Route: 058
     Dates: start: 20140305
  3. XOLAIR [Suspect]
     Active Substance: OMALIZUMAB
     Route: 058
     Dates: start: 20161123
  4. XOLAIR [Suspect]
     Active Substance: OMALIZUMAB
     Route: 058
     Dates: start: 20170403
  5. XOLAIR [Suspect]
     Active Substance: OMALIZUMAB
     Route: 058
     Dates: start: 20170501
  6. XOLAIR [Suspect]
     Active Substance: OMALIZUMAB
     Route: 058
     Dates: start: 20170529
  7. XOLAIR [Suspect]
     Active Substance: OMALIZUMAB
     Route: 058
     Dates: start: 20170626
  8. XOLAIR [Suspect]
     Active Substance: OMALIZUMAB
     Dosage: 150 MG, EVERY 4 WEEKS
     Route: 058
     Dates: start: 20181108
  9. XOLAIR [Suspect]
     Active Substance: OMALIZUMAB
     Route: 058
     Dates: start: 2019
  10. XOLAIR [Suspect]
     Active Substance: OMALIZUMAB
     Route: 058
     Dates: start: 20200521
  11. XOLAIR [Suspect]
     Active Substance: OMALIZUMAB
     Route: 058
     Dates: start: 20200804
  12. XOLAIR [Suspect]
     Active Substance: OMALIZUMAB
     Dosage: 150 MG, EVERY 4 WEEKS
     Route: 058
     Dates: start: 20150130
  13. XOLAIR [Suspect]
     Active Substance: OMALIZUMAB
     Route: 058
  14. XOLAIR [Suspect]
     Active Substance: OMALIZUMAB
     Route: 058
     Dates: start: 20201030
  15. XOLAIR [Suspect]
     Active Substance: OMALIZUMAB
     Route: 058
  16. AVELOX [Suspect]
     Active Substance: MOXIFLOXACIN HYDROCHLORIDE
     Indication: Sinusitis
     Dosage: UNK
     Route: 065
  17. AVELOX [Suspect]
     Active Substance: MOXIFLOXACIN HYDROCHLORIDE
     Route: 065

REACTIONS (42)
  - Pneumonia [Recovered/Resolved]
  - Upper limb fracture [Unknown]
  - Fall [Unknown]
  - Lower respiratory tract infection [Unknown]
  - Cardiac disorder [Unknown]
  - Bronchitis [Unknown]
  - Wheezing [Unknown]
  - Urinary tract infection [Unknown]
  - Fluid retention [Unknown]
  - Pain [Unknown]
  - Sleep apnoea syndrome [Unknown]
  - Obstructive airways disorder [Not Recovered/Not Resolved]
  - Forced expiratory volume decreased [Recovering/Resolving]
  - Chronic obstructive pulmonary disease [Unknown]
  - Diplopia [Recovering/Resolving]
  - Lung disorder [Unknown]
  - Symptom recurrence [Unknown]
  - Hypersensitivity [Unknown]
  - Sinusitis [Unknown]
  - Cough [Unknown]
  - Asthma [Unknown]
  - Heart rate irregular [Unknown]
  - Incorrect dose administered [Unknown]
  - Inappropriate schedule of product administration [Unknown]
  - Cardiomegaly [Unknown]
  - Hiatus hernia [Unknown]
  - Vascular occlusion [Unknown]
  - Joint dislocation [Unknown]
  - Poor quality sleep [Unknown]
  - Dyspnoea [Not Recovered/Not Resolved]
  - Contusion [Unknown]
  - Heart rate decreased [Unknown]
  - Nasal dryness [Unknown]
  - Weight decreased [Unknown]
  - Hypertension [Unknown]
  - Arthralgia [Unknown]
  - Epistaxis [Unknown]
  - Cough [Recovered/Resolved]
  - Increased bronchial secretion [Unknown]
  - Panic attack [Unknown]
  - Middle insomnia [Unknown]
  - Disease progression [Unknown]

NARRATIVE: CASE EVENT DATE: 20140701
